FAERS Safety Report 14046987 (Version 2)
Quarter: 2017Q4

REPORT INFORMATION
  Report Type: Spontaneous
  Country: US (occurrence: US)
  Receive Date: 20171005
  Receipt Date: 20171107
  Transmission Date: 20180321
  Serious: No
  Sender: FDA-Public Use
  Company Number: US-GLAXOSMITHKLINE-US2017GSK152754

PATIENT
  Sex: Male

DRUGS (1)
  1. LAMICTAL [Suspect]
     Active Substance: LAMOTRIGINE
     Indication: EPILEPSY
     Dosage: 5 DF, BID
     Route: 048
     Dates: start: 201305

REACTIONS (8)
  - Incorrect dose administered [Unknown]
  - Aggression [Unknown]
  - Wrong technique in product usage process [Unknown]
  - Product quality issue [Unknown]
  - Abnormal behaviour [Unknown]
  - Tearfulness [Unknown]
  - Therapeutic response decreased [Unknown]
  - Mood altered [Unknown]

NARRATIVE: CASE EVENT DATE: 2017
